FAERS Safety Report 24658883 (Version 1)
Quarter: 2024Q4

REPORT INFORMATION
  Report Type: Spontaneous
  Country: US (occurrence: None)
  Receive Date: 20241122
  Receipt Date: 20241122
  Transmission Date: 20250115
  Serious: Yes (Hospitalization, Congenital Anomaly, Other)
  Sender: Public
  Company Number: None

PATIENT
  Age: 3 Year
  Weight: 0.89 kg

DRUGS (3)
  1. DEXTROAMPHETAMINE SACCHARATE, AMPHETAMINE ASPARTATE, DEXTROAMPHETAMINE [Suspect]
     Active Substance: AMPHETAMINE ASPARTATE\AMPHETAMINE SULFATE\DEXTROAMPHETAMINE SACCHARATE\DEXTROAMPHETAMINE SULFATE
     Dates: start: 20210214
  2. BUPROPION [Suspect]
     Active Substance: BUPROPION
     Dates: start: 20210214
  3. ALBUTEROL [Suspect]
     Active Substance: ALBUTEROL
     Dates: start: 20210214

REACTIONS (14)
  - Nonreassuring foetal heart rate pattern [None]
  - Caesarean section [None]
  - Low birth weight baby [None]
  - Neonatal respiratory distress syndrome [None]
  - Infantile apnoea [None]
  - Hypoglycaemia [None]
  - Hyperbilirubinaemia [None]
  - Anaemia neonatal [None]
  - Buried penis syndrome [None]
  - Phimosis [None]
  - Inguinal hernia [None]
  - Hydrocele [None]
  - Maternal exposure during pregnancy [None]
  - Foetal exposure during pregnancy [None]

NARRATIVE: CASE EVENT DATE: 20240914
